FAERS Safety Report 14800769 (Version 13)
Quarter: 2021Q3

REPORT INFORMATION
  Report Type: Report from Study
  Country: NL (occurrence: NL)
  Receive Date: 20180424
  Receipt Date: 20210915
  Transmission Date: 20211014
  Serious: Yes (Other)
  Sender: FDA-Public Use
  Company Number: NL-MYLANLABS-2018M1025791

PATIENT
  Age: 63 Year
  Sex: Female
  Weight: 63 kg

DRUGS (18)
  1. DUODOPA [Suspect]
     Active Substance: CARBIDOPA\LEVODOPA
     Indication: PARKINSON^S DISEASE
     Dosage: UNK(MD 12.1, CD 5.9, ED 2.5)
     Route: 050
     Dates: start: 20160111
  2. DUODOPA [Suspect]
     Active Substance: CARBIDOPA\LEVODOPA
     Dosage: UNK(MD 12.1, CD 2.5, ED 4.0)
     Route: 050
  3. LEVODOPA/CARBIDOPA [Concomitant]
     Active Substance: CARBIDOPA\LEVODOPA
     Indication: PRODUCT USED FOR UNKNOWN INDICATION
     Dosage: 2 DOSAGE FORM, QD(100/25 MG 2 1 DAY)
  4. DUODOPA [Suspect]
     Active Substance: CARBIDOPA\LEVODOPA
     Dosage: UNK(MD: 12.1, CD: 4.4, ED: 2.5)
     Route: 050
  5. CLOZAPINE. [Concomitant]
     Active Substance: CLOZAPINE
     Indication: PRODUCT USED FOR UNKNOWN INDICATION
     Dosage: UNK
  6. FUROSEMIDE. [Concomitant]
     Active Substance: FUROSEMIDE
     Indication: PRODUCT USED FOR UNKNOWN INDICATION
     Dosage: 1 DOSAGE FORM, QD
     Dates: end: 201702
  7. LEVODOPA/CARBIDOPA [Concomitant]
     Active Substance: CARBIDOPA\LEVODOPA
     Dosage: 100/25 MG
  8. EXELON [Concomitant]
     Active Substance: RIVASTIGMINE TARTRATE
     Indication: PRODUCT USED FOR UNKNOWN INDICATION
     Dosage: 13.3 MILLIGRAM, QD
     Route: 065
  9. DUODOPA [Suspect]
     Active Substance: CARBIDOPA\LEVODOPA
     Dosage: UNK(MD 12.1, CD 5.2, ED 2.5)
     Route: 050
  10. DUODOPA [Suspect]
     Active Substance: CARBIDOPA\LEVODOPA
     Dosage: MD 12.3 CD 4.1 ED 2.5
     Route: 050
  11. LISINOPRIL/HYDROCHLOORTHIAZIDE [Concomitant]
     Active Substance: HYDROCHLOROTHIAZIDE\LISINOPRIL
     Indication: PRODUCT USED FOR UNKNOWN INDICATION
     Dosage: UNK (20/12.5 MG)
     Route: 065
  12. DUODOPA [Suspect]
     Active Substance: CARBIDOPA\LEVODOPA
     Dosage: UNK(MD 12.1, CD 4.9, ED 2.5)
     Route: 050
  13. DOXYCYCLINE. [Suspect]
     Active Substance: DOXYCYCLINE
     Indication: PRODUCT USED FOR UNKNOWN INDICATION
     Dosage: UNK
     Route: 065
     Dates: start: 20160427
  14. DUODOPA [Suspect]
     Active Substance: CARBIDOPA\LEVODOPA
     Dosage: UNK
     Route: 050
     Dates: start: 20160614
  15. DUODOPA [Suspect]
     Active Substance: CARBIDOPA\LEVODOPA
     Dosage: UNK(MD: 12.1, CD: 4.6, ED: 2.5)
     Route: 050
  16. DUODOPA [Suspect]
     Active Substance: CARBIDOPA\LEVODOPA
     Dosage: UNK (MD 12.2 ML, CD 4.2 ML/H, ED 2.5 ML)
     Route: 050
  17. DUODOPA [Suspect]
     Active Substance: CARBIDOPA\LEVODOPA
     Dosage: UNK(MD: 12.1, CD: 4.1, ED: 2.5)
     Route: 050
  18. NEDIOS [Concomitant]
     Indication: PRODUCT USED FOR UNKNOWN INDICATION
     Dosage: UNK

REACTIONS (57)
  - Cognitive disorder [Not Recovered/Not Resolved]
  - Slow speech [Not Recovered/Not Resolved]
  - Stoma site discomfort [Recovered/Resolved]
  - Stoma site extravasation [Not Recovered/Not Resolved]
  - Gait disturbance [Not Recovered/Not Resolved]
  - Infrequent bowel movements [Not Recovered/Not Resolved]
  - Influenza like illness [Not Recovered/Not Resolved]
  - On and off phenomenon [Not Recovered/Not Resolved]
  - Hallucination, auditory [Not Recovered/Not Resolved]
  - Freezing phenomenon [Not Recovered/Not Resolved]
  - Nuchal rigidity [Not Recovered/Not Resolved]
  - Nausea [Recovering/Resolving]
  - Therapeutic product effect variable [Not Recovered/Not Resolved]
  - Stoma site discharge [Recovered/Resolved]
  - Limb discomfort [Not Recovered/Not Resolved]
  - Hallucination, tactile [Not Recovered/Not Resolved]
  - Stoma site pain [Recovered/Resolved]
  - Delusion [Recovered/Resolved]
  - Stoma site erythema [Recovered/Resolved]
  - Fatigue [Not Recovered/Not Resolved]
  - Faeces hard [Unknown]
  - Stoma complication [Recovered/Resolved]
  - Appetite disorder [Not Recovered/Not Resolved]
  - Hypotension [Not Recovered/Not Resolved]
  - Obsessive-compulsive disorder [Not Recovered/Not Resolved]
  - Fear [Not Recovered/Not Resolved]
  - Musculoskeletal stiffness [Not Recovered/Not Resolved]
  - Oral pain [Not Recovered/Not Resolved]
  - Grimacing [Not Recovered/Not Resolved]
  - Influenza [Not Recovered/Not Resolved]
  - Device breakage [Unknown]
  - Unevaluable event [Recovered/Resolved]
  - Stoma site irritation [Recovered/Resolved]
  - Muscle rigidity [Not Recovered/Not Resolved]
  - Fall [Recovered/Resolved]
  - Disinhibition [Not Recovered/Not Resolved]
  - Hypoacusis [Not Recovered/Not Resolved]
  - Hyperkinesia [Not Recovered/Not Resolved]
  - Ear infection [Not Recovered/Not Resolved]
  - Skin irritation [Not Recovered/Not Resolved]
  - Dyskinesia [Not Recovered/Not Resolved]
  - Vomiting [Not Recovered/Not Resolved]
  - Chest pain [Not Recovered/Not Resolved]
  - Oral discomfort [Not Recovered/Not Resolved]
  - Neck pain [Not Recovered/Not Resolved]
  - Bradykinesia [Not Recovered/Not Resolved]
  - Headache [Not Recovered/Not Resolved]
  - Therapeutic product effect incomplete [Recovered/Resolved]
  - Hallucination [Not Recovered/Not Resolved]
  - Dry mouth [Not Recovered/Not Resolved]
  - Urinary incontinence [Unknown]
  - Stoma site hypersensitivity [Not Recovered/Not Resolved]
  - Medical device site hyperaesthesia [Recovered/Resolved]
  - Malaise [Recovered/Resolved]
  - Hallucination, visual [Not Recovered/Not Resolved]
  - Drug level below therapeutic [Unknown]
  - Pruritus [Not Recovered/Not Resolved]

NARRATIVE: CASE EVENT DATE: 201605
